FAERS Safety Report 8544152-0 (Version None)
Quarter: 2012Q3

REPORT INFORMATION
  Report Type: 
  Country: None (occurrence: None)
  Receive Date: 20120727
  Receipt Date: 20120717
  Transmission Date: 20120928
  Serious: Yes (Hospitalization)
  Sender: FDA-Public Use
  Company Number: US-BAYER-2012-023886

PATIENT
  Age: 39 Year
  Sex: Female
  Weight: 62.132 kg

DRUGS (9)
  1. YAZ [Suspect]
     Indication: CONTRACEPTION
     Dosage: UNK
     Dates: start: 20061201, end: 20070901
  2. ALEVE [Concomitant]
  3. FISH OIL [Concomitant]
  4. YAZ [Suspect]
     Indication: MENSTRUAL CYCLE MANAGEMENT
     Dosage: UNK
     Dates: start: 20061201, end: 20070901
  5. YAZ [Suspect]
  6. MULTIVITAMINS AND IRON [Concomitant]
  7. ALEVE (CAPLET) [Concomitant]
     Dosage: UNK
     Dates: start: 20070905
  8. CELEBREX [Concomitant]
  9. FENOFIBRATE [Concomitant]

REACTIONS (5)
  - DEEP VEIN THROMBOSIS [None]
  - PAIN [None]
  - EMOTIONAL DISTRESS [None]
  - ANXIETY [None]
  - GENERAL PHYSICAL HEALTH DETERIORATION [None]
